FAERS Safety Report 8006699-5 (Version None)
Quarter: 2011Q4

REPORT INFORMATION
  Report Type: 
  Country: None (occurrence: None)
  Receive Date: 20111227
  Receipt Date: 20111215
  Transmission Date: 20120403
  Serious: Yes (Hospitalization)
  Sender: FDA-Public Use
  Company Number: CA-JNJFOC-20111208260

PATIENT
  Sex: Female
  Weight: 60.9 kg

DRUGS (11)
  1. REMICADE [Suspect]
     Indication: RHEUMATOID ARTHRITIS
     Dosage: 29 TH INFUSION
     Route: 042
     Dates: start: 20070524
  2. ASACOL [Concomitant]
     Indication: COLITIS ULCERATIVE
  3. HUMALOG [Concomitant]
     Indication: TYPE 1 DIABETES MELLITUS
  4. CARVEDILOL [Concomitant]
     Indication: CARDIAC DISORDER
  5. METHOTREXATE [Concomitant]
     Indication: RHEUMATOID ARTHRITIS
     Route: 048
  6. ASPIRIN [Concomitant]
     Indication: CARDIAC DISORDER
  7. ALENDRONATE SODIUM [Concomitant]
     Indication: OSTEOPOROSIS
     Route: 048
  8. SERTRALINE HYDROCHLORIDE [Concomitant]
  9. LANTUS [Concomitant]
     Indication: TYPE 1 DIABETES MELLITUS
  10. REMICADE [Suspect]
     Route: 042
     Dates: start: 20111013
  11. CRESTOR [Concomitant]
     Indication: BLOOD CHOLESTEROL INCREASED

REACTIONS (5)
  - CHEST PAIN [None]
  - CORONARY ARTERY OCCLUSION [None]
  - DIZZINESS [None]
  - WEIGHT DECREASED [None]
  - DYSPNOEA [None]
